FAERS Safety Report 20581303 (Version 1)
Quarter: 2022Q1

REPORT INFORMATION
  Report Type: Spontaneous
  Country: CN (occurrence: CN)
  Receive Date: 20220311
  Receipt Date: 20220311
  Transmission Date: 20220424
  Serious: Yes (Other)
  Sender: FDA-Public Use
  Company Number: CN-GRUNENTHAL-2022-101964

PATIENT
  Age: 42 Year
  Sex: Female
  Weight: 57 kg

DRUGS (1)
  1. TRAMADOL HYDROCHLORIDE [Suspect]
     Active Substance: TRAMADOL HYDROCHLORIDE
     Indication: Tumour pain
     Dosage: 100 MILLIGRAM, 1/DAY
     Route: 030
     Dates: start: 20220215, end: 20220215

REACTIONS (3)
  - Tachypnoea [Recovering/Resolving]
  - Hypoaesthesia [Recovering/Resolving]
  - Dyspnoea [Recovering/Resolving]

NARRATIVE: CASE EVENT DATE: 20220215
